FAERS Safety Report 6024341-X (Version None)
Quarter: 2008Q4

REPORT INFORMATION
  Report Type: 
  Country: None (occurrence: None)
  Receive Date: 20081229
  Receipt Date: 20081216
  Transmission Date: 20090506
  Serious: Yes (Hospitalization)
  Sender: FDA-Public Use
  Company Number: DSA_65084_2008

PATIENT
  Age: 16 Month
  Sex: Male

DRUGS (6)
  1. NAPROXEN [Suspect]
     Indication: ARTHRALGIA
     Dosage: (17 MG/KG QD)
  2. NAPROXEN [Suspect]
     Indication: JOINT SWELLING
     Dosage: (17 MG/KG QD)
  3. NAPROXEN [Suspect]
     Indication: OEDEMA PERIPHERAL
     Dosage: (17 MG/KG QD)
  4. NAPROXEN [Suspect]
     Indication: PAIN IN EXTREMITY
     Dosage: (17 MG/KG QD)
  5. TRIAMCINOLONE HEXACETONIDE [Concomitant]
  6. FERROUS FUMARATE [Concomitant]

REACTIONS (16)
  - ARTERIAL BRUIT [None]
  - ASCITES [None]
  - CARDIAC MURMUR [None]
  - EYE SWELLING [None]
  - FAECES DISCOLOURED [None]
  - GENERALISED OEDEMA [None]
  - HEART RATE INCREASED [None]
  - HYPOALBUMINAEMIA [None]
  - IRON DEFICIENCY ANAEMIA [None]
  - JUVENILE ARTHRITIS [None]
  - OCCULT BLOOD POSITIVE [None]
  - PALLOR [None]
  - PLATELET COUNT INCREASED [None]
  - STOOL ANALYSIS ABNORMAL [None]
  - WEIGHT INCREASED [None]
  - WHITE BLOOD CELL COUNT INCREASED [None]
